FAERS Safety Report 6106725-4 (Version None)
Quarter: 2009Q1

REPORT INFORMATION
  Report Type: 
  Country: None (occurrence: None)
  Receive Date: 20090302
  Receipt Date: 20090225
  Transmission Date: 20090719
  Serious: Yes (Hospitalization)
  Sender: FDA-Public Use
  Company Number: GXKR2009DE02324

PATIENT
  Age: 86 Year
  Sex: Male
  Weight: 65 kg

DRUGS (8)
  1. ENALAPRIL              (ENALAPRIL MALEATE) TABLET, 5MG [Suspect]
     Indication: HYPERTENSION
     Dosage: 2.5 MG, BID, ORAL
     Route: 048
     Dates: start: 20080401, end: 20080729
  2. XIPAMIDE                  (XIPAMIDE) TABLET, 20MG [Suspect]
     Indication: CARDIAC FAILURE
     Dosage: 20 MG, QD, ORAL
     Route: 048
     Dates: start: 20080401, end: 20080727
  3. AMLODIPINE           (AMLODIPINE) TABLET, 5MG [Suspect]
     Indication: HYPERTENSION
     Dosage: 5 MF, QD, ORAL
     Route: 048
     Dates: start: 20070101, end: 20080727
  4. BISOPROLOL          (BISOPROLOL) FILM-COATED TABLET, 2.5MG [Suspect]
     Indication: HYPERTENSION
     Dosage: 2.5 MG, QD, ORAL
     Route: 048
     Dates: start: 20070101, end: 20070727
  5. TAVANIC            (LEVOFLOXACIN) 250MG [Suspect]
     Indication: URINARY TRACT INFECTION
     Dosage: 250 MG, QD, ORAL
     Route: 048
     Dates: start: 20080721, end: 20080803
  6. ACETYLSALICYLIC ACID           (ACETYLSALICYLIC ACID), 300 MG [Concomitant]
  7. CETIRIZINE       (CETIRIZINE), 10 MG [Concomitant]
  8. NOVALGIN              (METAMIZOLE SODIUM MONOHYDRATE) [Concomitant]

REACTIONS (1)
  - RENAL FAILURE ACUTE [None]
